FAERS Safety Report 7907626-9 (Version None)
Quarter: 2011Q4

REPORT INFORMATION
  Report Type: 
  Country: None (occurrence: None)
  Receive Date: 20111110
  Receipt Date: 20111107
  Transmission Date: 20120403
  Serious: Yes (Death)
  Sender: FDA-Public Use
  Company Number: PHEH2011US05239

PATIENT
  Sex: Female
  Weight: 62.585 kg

DRUGS (4)
  1. TRAZEPAM [Concomitant]
     Indication: INSOMNIA
     Dosage: 15 MG, UNK
     Route: 048
  2. GILENYA [Suspect]
     Indication: RELAPSING-REMITTING MULTIPLE SCLEROSIS
     Dosage: 0.5 MG, DAILY
     Route: 048
     Dates: start: 20110419
  3. IBUPROFEN [Concomitant]
     Indication: ARTHRITIS
     Dosage: 800 MG, TID
     Route: 048
  4. CELEBREX [Concomitant]
     Dosage: UNK

REACTIONS (1)
  - DEATH [None]
